FAERS Safety Report 10193843 (Version 1)
Quarter: 2014Q2

REPORT INFORMATION
  Report Type: Spontaneous
  Country: US (occurrence: US)
  Receive Date: 20140524
  Receipt Date: 20140524
  Transmission Date: 20141212
  Serious: No
  Sender: FDA-Public Use
  Company Number: US-SANOFI-AVENTIS-2013SA048205

PATIENT
  Age: 68 Year
  Sex: Male

DRUGS (2)
  1. LANTUS SOLOSTAR [Suspect]
     Indication: TYPE 2 DIABETES MELLITUS
     Dosage: TAKEN FROM - 1 YEAR AGO, 28 UNITS IN THE MORNING AND 23 UNITS IN THE EVENING
     Route: 065
  2. SOLOSTAR [Suspect]
     Indication: TYPE 2 DIABETES MELLITUS
     Dosage: TAKEN FROM- 1 YEAR AGO

REACTIONS (2)
  - Hyperhidrosis [Recovered/Resolved]
  - Blood glucose increased [Unknown]
